FAERS Safety Report 7806992-2 (Version None)
Quarter: 2011Q3

REPORT INFORMATION
  Report Type: 
  Country: None (occurrence: None)
  Receive Date: 20110901
  Receipt Date: 20110518
  Transmission Date: 20111222
  Serious: Yes (Disabling, Other)
  Sender: FDA-Public Use
  Company Number: 273352USA

PATIENT
  Age: 77 Year
  Sex: Male
  Weight: 109.7705 kg

DRUGS (2)
  1. METOCLOPRAMIDE [Suspect]
     Indication: GASTROOESOPHAGEAL REFLUX DISEASE
     Dosage: ORAL
     Route: 048
     Dates: start: 20061118
  2. METOCLOPRAMIDE [Suspect]
     Indication: GASTROOESOPHAGEAL REFLUX DISEASE

REACTIONS (8)
  - DYSKINESIA [None]
  - AKATHISIA [None]
  - EXTRAPYRAMIDAL DISORDER [None]
  - CHOREA [None]
  - TARDIVE DYSKINESIA [None]
  - MUSCLE TWITCHING [None]
  - DYSTONIA [None]
  - EXCESSIVE EYE BLINKING [None]
